FAERS Safety Report 4977681-7 (Version None)
Quarter: 2006Q2

REPORT INFORMATION
  Report Type: 
  Country: None (occurrence: None)
  Receive Date: 20060420
  Receipt Date: 20051014
  Transmission Date: 20061013
  Serious: No
  Sender: FDA-Public Use
  Company Number: US-GLAXOSMITHKLINE-A0578282A

PATIENT
  Age: 48 Year
  Sex: Female

DRUGS (6)
  1. ESKALITH [Suspect]
     Dosage: 900MG PER DAY
     Route: 048
     Dates: end: 20051011
  2. LIPITOR [Concomitant]
  3. LEVOTHYROXIN [Concomitant]
  4. NORVASC [Concomitant]
  5. CHLORAZEPAM [Concomitant]
  6. LITHIUM CARBONATE [Concomitant]
     Indication: BIPOLAR DISORDER
     Route: 065

REACTIONS (2)
  - DISTURBANCE IN ATTENTION [None]
  - INSOMNIA [None]
